FAERS Safety Report 17718254 (Version 1)
Quarter: 2020Q2

REPORT INFORMATION
  Report Type: Spontaneous
  Country: DE (occurrence: DE)
  Receive Date: 20200428
  Receipt Date: 20200428
  Transmission Date: 20200714
  Serious: Yes (Other)
  Sender: FDA-Public Use
  Company Number: NVSC2020DE113589

PATIENT
  Age: 79 Year
  Sex: Female

DRUGS (4)
  1. FOSFOMYCIN [Suspect]
     Active Substance: FOSFOMYCIN
     Indication: PRODUCT USED FOR UNKNOWN INDICATION
     Dosage: UNK
     Route: 048
  2. AMOXICLAVULAN - 1 A PHARMA 875 MG/125 MG TABLETTEN [Suspect]
     Active Substance: AMOXICILLIN\CLAVULANATE POTASSIUM
     Indication: PRODUCT USED FOR UNKNOWN INDICATION
     Route: 048
  3. CIPROHEXAL [CIPROFLOXACIN HYDROCHLORIDE] [Suspect]
     Active Substance: CIPROFLOXACIN HYDROCHLORIDE
     Indication: PRODUCT USED FOR UNKNOWN INDICATION
     Dosage: UNK
     Route: 048
  4. SULFAMETHOXAZOLE,TRIMETHOPRIM [Suspect]
     Active Substance: SULFAMETHOXAZOLE\TRIMETHOPRIM
     Indication: CYSTITIS NONINFECTIVE
     Dosage: 2 DF (1 DF CONTAINS: 800 MG SULFAMETHOXAZOLE AND 160 MG TRIMETHOPRIM; INTAKE 2 DF^S ONCE SO FAR)
     Route: 048
     Dates: start: 20190802

REACTIONS (1)
  - Clostridial infection [Unknown]

NARRATIVE: CASE EVENT DATE: 201910
